FAERS Safety Report 21735534 (Version 1)
Quarter: 2022Q4

REPORT INFORMATION
  Report Type: Spontaneous
  Country: US (occurrence: None)
  Receive Date: 20221213
  Receipt Date: 20221213
  Transmission Date: 20230113
  Serious: Yes (Other)
  Sender: FDA-Public Use
  Company Number: None

PATIENT
  Age: 15 Year
  Sex: Female

DRUGS (1)
  1. AMMONIA INHALANT [Suspect]
     Active Substance: AMMONIA
     Dates: start: 20221212

REACTIONS (1)
  - Seizure [None]

NARRATIVE: CASE EVENT DATE: 20221212
